FAERS Safety Report 4995444-3 (Version None)
Quarter: 2006Q2

REPORT INFORMATION
  Report Type: 
  Country: None (occurrence: None)
  Receive Date: 20060503
  Receipt Date: 20060426
  Transmission Date: 20061013
  Serious: Yes (Hospitalization)
  Sender: FDA-Public Use
  Company Number: 2006BI003511

PATIENT
  Age: 67 Year
  Sex: Female

DRUGS (6)
  1. AVONEX [Suspect]
     Indication: MULTIPLE SCLEROSIS
     Dosage: 30 UG; QW; IM
     Route: 030
     Dates: start: 19960101
  2. AVONEX [Suspect]
     Indication: MULTIPLE SCLEROSIS
     Dosage: 30 UG; QW; IM
     Route: 030
  3. MIACALCIN [Concomitant]
  4. SENNA [Concomitant]
  5. NEURONTIN [Concomitant]
  6. ZOLOFT [Concomitant]

REACTIONS (6)
  - FACIAL BONES FRACTURE [None]
  - FALL [None]
  - HAEMORRHAGE [None]
  - PLATELET COUNT DECREASED [None]
  - SKIN LACERATION [None]
  - SPINAL FRACTURE [None]
